FAERS Safety Report 5945475-1 (Version None)
Quarter: 2008Q4

REPORT INFORMATION
  Report Type: 
  Country: None (occurrence: None)
  Receive Date: 20081107
  Receipt Date: 20081027
  Transmission Date: 20090506
  Serious: Yes (Hospitalization)
  Sender: FDA-Public Use
  Company Number: AT-PFIZER INC-2008089429

PATIENT
  Age: 44 Year
  Sex: Male
  Weight: 73.8 kg

DRUGS (1)
  1. CHAMPIX [Suspect]
     Indication: SMOKING CESSATION THERAPY
     Route: 048
     Dates: start: 20080420, end: 20080501

REACTIONS (5)
  - DELUSIONAL DISORDER, PERSECUTORY TYPE [None]
  - MANIA [None]
  - PSYCHOTIC DISORDER [None]
  - RESTLESSNESS [None]
  - SLEEP DISORDER [None]
